FAERS Safety Report 7767458-1 (Version None)
Quarter: 2011Q3

REPORT INFORMATION
  Report Type: 
  Country: None (occurrence: None)
  Receive Date: 20110922
  Receipt Date: 20100819
  Transmission Date: 20111222
  Serious: No
  Sender: FDA-Public Use
  Company Number: US-ASTRAZENECA-2010SE39201

PATIENT
  Age: 441 Month
  Sex: Male
  Weight: 90.7 kg

DRUGS (2)
  1. SEROQUEL XR [Suspect]
     Route: 048
     Dates: start: 20100801
  2. SEROQUEL XR [Suspect]
     Route: 048
     Dates: start: 20100801, end: 20100801

REACTIONS (1)
  - FEELING ABNORMAL [None]
